FAERS Safety Report 7156730-4 (Version None)
Quarter: 2010Q4

REPORT INFORMATION
  Report Type: 
  Country: None (occurrence: None)
  Receive Date: 20101123
  Receipt Date: 20101112
  Transmission Date: 20110411
  Serious: Yes (Other)
  Sender: FDA-Public Use
  Company Number: AECAN201000415

PATIENT
  Age: 59 Year
  Sex: Male
  Weight: 82 kg

DRUGS (1)
  1. GAMUNEX [Suspect]
     Indication: HYPOGAMMAGLOBULINAEMIA
     Dosage: 40 GM;QM;IV
     Route: 042
     Dates: start: 20081029

REACTIONS (2)
  - FALSE POSITIVE INVESTIGATION RESULT [None]
  - HEPATITIS C RNA POSITIVE [None]
